FAERS Safety Report 6089917-2 (Version None)
Quarter: 2009Q1

REPORT INFORMATION
  Report Type: 
  Country: None (occurrence: None)
  Receive Date: 20090224
  Receipt Date: 20081121
  Transmission Date: 20090719
  Serious: No
  Sender: FDA-Public Use
  Company Number: US-ABBOTT-08P-163-0489386-00

PATIENT
  Sex: Female

DRUGS (5)
  1. SIMCOR [Suspect]
     Indication: DRUG USE FOR UNKNOWN INDICATION
     Dosage: 500MG/20MG THEN AFTER ONE WEEK 2 PILLS
     Dates: start: 20081107
  2. SIMCOR [Suspect]
     Dosage: 2 PILLS A DAY
  3. FLEXATINE [Concomitant]
     Indication: DRUG USE FOR UNKNOWN INDICATION
  4. HYZAAR [Concomitant]
     Indication: DRUG USE FOR UNKNOWN INDICATION
  5. YASMIN [Concomitant]
     Indication: DRUG USE FOR UNKNOWN INDICATION

REACTIONS (2)
  - FLUSHING [None]
  - PRURITUS [None]
